FAERS Safety Report 8807072 (Version 2)
Quarter: 2015Q3

REPORT INFORMATION
  Report Type: Report from Study
  Country: US (occurrence: US)
  Receive Date: 20120925
  Receipt Date: 20150701
  Transmission Date: 20151125
  Serious: Yes (Death, Hospitalization)
  Sender: FDA-Public Use
  Company Number: US-ROCHE-1127634

PATIENT
  Age: 56 Year
  Sex: Female

DRUGS (12)
  1. AVASTIN [Suspect]
     Active Substance: BEVACIZUMAB
     Indication: SMALL INTESTINE CARCINOMA
     Route: 042
     Dates: start: 20060110
  2. HEPARIN [Concomitant]
     Active Substance: HEPARIN SODIUM
     Dosage: 500 UNITS
     Route: 065
  3. TYLENOL [Concomitant]
     Active Substance: ACETAMINOPHEN
     Route: 048
  4. CHOLESTYRAMINE. [Concomitant]
     Active Substance: CHOLESTYRAMINE
  5. CYANOCOBALAMIN. [Concomitant]
     Active Substance: CYANOCOBALAMIN
     Route: 030
  6. OCTREOTIDE. [Concomitant]
     Active Substance: OCTREOTIDE
     Route: 030
  7. OCTREOTIDE. [Concomitant]
     Active Substance: OCTREOTIDE
     Route: 030
     Dates: start: 200207, end: 2004
  8. AVASTIN [Suspect]
     Active Substance: BEVACIZUMAB
     Route: 065
     Dates: start: 20060131
  9. AVASTIN [Suspect]
     Active Substance: BEVACIZUMAB
     Indication: RENAL CANCER
     Route: 042
     Dates: start: 20050412, end: 20050923
  10. BENADRYL [Concomitant]
     Active Substance: DIPHENHYDRAMINE HYDROCHLORIDE
     Route: 065
  11. DIPHENHYDRAMINE. [Concomitant]
     Active Substance: DIPHENHYDRAMINE
     Route: 042
  12. SORAFENIB [Concomitant]
     Active Substance: SORAFENIB

REACTIONS (11)
  - Off label use [Unknown]
  - Abdominal pain [Unknown]
  - Malaise [Unknown]
  - No therapeutic response [Unknown]
  - Death [Fatal]
  - Vomiting [Unknown]
  - Hip fracture [Unknown]
  - Abdominal distension [Unknown]
  - Diarrhoea [Unknown]
  - Disease progression [Unknown]
  - Protein urine [Unknown]

NARRATIVE: CASE EVENT DATE: 20060625
